FAERS Safety Report 17984873 (Version 1)
Quarter: 2020Q3

REPORT INFORMATION
  Report Type: Spontaneous
  Country: US (occurrence: US)
  Receive Date: 20200706
  Receipt Date: 20200706
  Transmission Date: 20201103
  Serious: Yes (Other)
  Sender: FDA-Public Use
  Company Number: US-PFIZER INC-2020256777

PATIENT
  Age: 63 Year
  Sex: Male

DRUGS (12)
  1. RIFABUTIN. [Suspect]
     Active Substance: RIFABUTIN
     Indication: DISSEMINATED MYCOBACTERIUM AVIUM COMPLEX INFECTION
     Dosage: 300 MG, 1X/DAY
  2. VALACYCLOVIR [Concomitant]
     Active Substance: VALACYCLOVIR HYDROCHLORIDE
     Dosage: UNK (RESTARTED)
  3. AZITHROMYCIN ANHYDROUS. [Concomitant]
     Active Substance: AZITHROMYCIN ANHYDROUS
     Indication: DISSEMINATED MYCOBACTERIUM AVIUM COMPLEX INFECTION
     Dosage: 500 MG, DAILY
  4. ETHAMBUTOL [Concomitant]
     Active Substance: ETHAMBUTOL HYDROCHLORIDE
     Indication: DISSEMINATED MYCOBACTERIUM AVIUM COMPLEX INFECTION
     Dosage: 1600 MG, DAILY
  5. MYCOPHENOLATE SODIUM [Concomitant]
     Active Substance: MYCOPHENOLATE SODIUM
     Indication: IMMUNOSUPPRESSION
     Dosage: UNK
  6. ACYCLOVIR [ACICLOVIR] [Concomitant]
     Active Substance: ACYCLOVIR
     Indication: OESOPHAGITIS
  7. CYCLOSPORINE. [Concomitant]
     Active Substance: CYCLOSPORINE
     Indication: IMMUNOSUPPRESSION
     Dosage: UNK
  8. VALACYCLOVIR [Concomitant]
     Active Substance: VALACYCLOVIR HYDROCHLORIDE
     Indication: PROPHYLAXIS
     Dosage: UNK
  9. ETHAMBUTOL [Concomitant]
     Active Substance: ETHAMBUTOL HYDROCHLORIDE
     Dosage: 1600 MG, DAILY (RESTART)
  10. PREDNISONE. [Concomitant]
     Active Substance: PREDNISONE
     Dosage: UNK (USE OF LOW?DOSE)
  11. ACYCLOVIR [ACICLOVIR] [Concomitant]
     Active Substance: ACYCLOVIR
     Indication: ORAL HERPES
     Dosage: UNK
  12. PREDNISONE. [Concomitant]
     Active Substance: PREDNISONE
     Indication: IMMUNOSUPPRESSION
     Dosage: 10 MG, DAILY

REACTIONS (1)
  - Stevens-Johnson syndrome [Unknown]
